FAERS Safety Report 19199006 (Version 2)
Quarter: 2021Q2

REPORT INFORMATION
  Report Type: Spontaneous
  Country: DZ (occurrence: DZ)
  Receive Date: 20210429
  Receipt Date: 20210602
  Transmission Date: 20210717
  Serious: Yes (Other)
  Sender: FDA-Public Use
  Company Number: DZ-ABBVIE-21K-003-3881418-00

PATIENT
  Age: 54 Year
  Sex: Male

DRUGS (1)
  1. HUMIRA [Suspect]
     Active Substance: ADALIMUMAB
     Indication: AXIAL SPONDYLOARTHRITIS
     Dosage: 1 INJECTION
     Route: 058
     Dates: start: 2016, end: 202104

REACTIONS (5)
  - Weight decreased [Unknown]
  - General physical health deterioration [Unknown]
  - Abdominal pain upper [Unknown]
  - B-cell lymphoma [Not Recovered/Not Resolved]
  - Gastric cancer [Unknown]

NARRATIVE: CASE EVENT DATE: 202104
